FAERS Safety Report 6377294-9 (Version None)
Quarter: 2009Q3

REPORT INFORMATION
  Report Type: 
  Country: None (occurrence: None)
  Receive Date: 20090923
  Receipt Date: 20090923
  Transmission Date: 20100115
  Serious: Yes (Hospitalization)
  Sender: FDA-Public Use
  Company Number: None

PATIENT
  Age: 49 Year
  Sex: Male

DRUGS (6)
  1. WARFARIN [Suspect]
     Indication: DEEP VEIN THROMBOSIS
     Dosage: 2.5MG PO DAILY
     Route: 048
  2. OMEPRAZOLE [Concomitant]
  3. PREDNISONE [Concomitant]
  4. FENTANYL TRANSDERMAL SYSTEM [Concomitant]
  5. CEPHALAXIN [Concomitant]
  6. MAGIC MOUTHWASH [Concomitant]

REACTIONS (7)
  - EPISTAXIS [None]
  - HYPOPHAGIA [None]
  - INTERNATIONAL NORMALISED RATIO INCREASED [None]
  - MUCOSAL INFLAMMATION [None]
  - POST PROCEDURAL HAEMORRHAGE [None]
  - PROCEDURAL SITE REACTION [None]
  - PURULENT DISCHARGE [None]
